FAERS Safety Report 7038171-3 (Version None)
Quarter: 2010Q4

REPORT INFORMATION
  Report Type: 
  Country: None (occurrence: None)
  Receive Date: 20101011
  Receipt Date: 20101004
  Transmission Date: 20110411
  Serious: Yes (Other)
  Sender: FDA-Public Use
  Company Number: SE-MERCK-1010SWE00006

PATIENT
  Age: 62 Year
  Sex: Female

DRUGS (3)
  1. ZETIA [Suspect]
     Indication: HYPERLIPIDAEMIA
     Route: 048
     Dates: start: 20100401, end: 20100725
  2. MEDROL [Concomitant]
     Indication: POLYARTHRITIS
     Route: 048
  3. CELL CEPT [Concomitant]
     Indication: POLYARTHRITIS
     Route: 065

REACTIONS (1)
  - MACULOPATHY [None]
